FAERS Safety Report 5406926-4 (Version None)
Quarter: 2007Q3

REPORT INFORMATION
  Report Type: 
  Country: None (occurrence: None)
  Receive Date: 20070807
  Receipt Date: 20070801
  Transmission Date: 20080115
  Serious: Yes (Hospitalization)
  Sender: FDA-Public Use
  Company Number: FR-BRISTOL-MYERS SQUIBB COMPANY-13866314

PATIENT
  Age: 75 Year
  Sex: Female

DRUGS (6)
  1. ELISOR TABS 20 MG [Suspect]
     Route: 048
  2. LERCAN [Concomitant]
  3. BURINEX [Concomitant]
  4. KARDEGIC [Concomitant]
  5. ATACAND [Concomitant]
  6. BISOPROLOL FUMARATE [Concomitant]

REACTIONS (3)
  - ALANINE AMINOTRANSFERASE INCREASED [None]
  - ASPARTATE AMINOTRANSFERASE INCREASED [None]
  - PHLEBITIS [None]
